FAERS Safety Report 15074779 (Version 1)
Quarter: 2018Q2

REPORT INFORMATION
  Report Type: Spontaneous
  Country: US (occurrence: US)
  Receive Date: 20180627
  Receipt Date: 20180627
  Transmission Date: 20180711
  Serious: Yes (Hospitalization, Other)
  Sender: FDA-Public Use
  Company Number: US-SAOL THERAPEUTICS-2017SAO01314

PATIENT
  Age: 35 Year
  Sex: Female
  Weight: 76 kg

DRUGS (12)
  1. FENTANYL. [Suspect]
     Active Substance: FENTANYL
     Dosage: 300 ?G, \DAY
     Route: 037
  2. IBUPROFEN. [Concomitant]
     Active Substance: IBUPROFEN
  3. LOMOTIL [Concomitant]
     Active Substance: ATROPINE SULFATE\DIPHENOXYLATE HYDROCHLORIDE
  4. VOLTAREN [Concomitant]
     Active Substance: DICLOFENAC SODIUM
  5. TOPIRAMATE. [Concomitant]
     Active Substance: TOPIRAMATE
  6. BUPIVACAINE. [Suspect]
     Active Substance: BUPIVACAINE
     Dosage: 3 MG, \DAY
     Route: 037
  7. BACLOFEN. [Suspect]
     Active Substance: BACLOFEN
     Dosage: 30 ?G, \DAY
     Route: 037
  8. HYDROMORPHONE [Suspect]
     Active Substance: HYDROMORPHONE
     Dosage: 60 ?G, \DAY
  9. NAPROXEN. [Concomitant]
     Active Substance: NAPROXEN
  10. ZOFRAN [Concomitant]
     Active Substance: ONDANSETRON HYDROCHLORIDE
  11. ANASPAZ [Concomitant]
     Active Substance: HYOSCYAMINE SULFATE
  12. MICROZIDE [Concomitant]
     Active Substance: HYDROCHLOROTHIAZIDE

REACTIONS (5)
  - Weight increased [Unknown]
  - Respiratory depression [Recovered/Resolved]
  - Overdose [Recovered/Resolved]
  - Somnolence [Recovered/Resolved]
  - Device malfunction [Recovered/Resolved]

NARRATIVE: CASE EVENT DATE: 20170731
